FAERS Safety Report 4980353-6 (Version None)
Quarter: 2006Q2

REPORT INFORMATION
  Report Type: 
  Country: None (occurrence: None)
  Receive Date: 20060420
  Receipt Date: 20060420
  Transmission Date: 20061013
  Serious: Yes (Life-Threatening, Hospitalization)
  Sender: FDA-Public Use
  Company Number: None

PATIENT
  Age: 78 Year
  Sex: Female
  Weight: 104.3273 kg

DRUGS (1)
  1. SENOKOT [Suspect]

REACTIONS (2)
  - MUSCLE SPASMS [None]
  - RECTAL HAEMORRHAGE [None]
